FAERS Safety Report 18778842 (Version 4)
Quarter: 2021Q1

REPORT INFORMATION
  Report Type: Spontaneous
  Country: KZ (occurrence: KZ)
  Receive Date: 20210124
  Receipt Date: 20210303
  Transmission Date: 20210419
  Serious: Yes (Death, Other)
  Sender: FDA-Public Use
  Company Number: KZ-BIOMARINAP-KZ-2021-134564

PATIENT
  Age: 27 Year
  Sex: Female

DRUGS (1)
  1. NAGLAZYME [Suspect]
     Active Substance: GALSULFASE
     Indication: MUCOPOLYSACCHARIDOSIS VI
     Dosage: 5 MILLIGRAM
     Route: 042
     Dates: start: 201212

REACTIONS (8)
  - Disease progression [Fatal]
  - Chest pain [Unknown]
  - Hypotension [Unknown]
  - Cardiovascular insufficiency [Unknown]
  - Dyspnoea [Unknown]
  - Oxygen saturation decreased [Unknown]
  - Pneumonia [Unknown]
  - Palpitations [Unknown]

NARRATIVE: CASE EVENT DATE: 202012
